FAERS Safety Report 19623957 (Version 1)
Quarter: 2021Q3

REPORT INFORMATION
  Report Type: Spontaneous
  Country: ES (occurrence: ES)
  Receive Date: 20210728
  Receipt Date: 20210728
  Transmission Date: 20211014
  Serious: Yes (Hospitalization, Other)
  Sender: FDA-Public Use
  Company Number: ES-PFIZER INC-202100929562

PATIENT
  Age: 43 Year
  Sex: Male

DRUGS (1)
  1. METHYLPREDNISOLONE SODIUM SUCCINATE. [Suspect]
     Active Substance: METHYLPREDNISOLONE SODIUM SUCCINATE
     Indication: OPTIC NEURITIS
     Dosage: 1000 MG (MEGADOSES)
     Route: 042

REACTIONS (2)
  - Retinal detachment [Recovering/Resolving]
  - Syphilis [Recovering/Resolving]
